FAERS Safety Report 8291517-0 (Version None)
Quarter: 2012Q2

REPORT INFORMATION
  Report Type: 
  Country: None (occurrence: None)
  Receive Date: 20120417
  Receipt Date: 20110616
  Transmission Date: 20120825
  Serious: Yes (Death)
  Sender: FDA-Public Use
  Company Number: US-PFIZER INC-2011133347

PATIENT
  Sex: Male

DRUGS (8)
  1. ASCORBIC ACID [Concomitant]
     Dosage: 250 MG, UNK
  2. CENTRUM [Concomitant]
  3. ATENOLOL [Concomitant]
     Dosage: 25 MG, UNK
  4. AMLODIPINE [Concomitant]
     Dosage: 2.5 MG, UNK
  5. SUTENT [Suspect]
     Dosage: 50 MG, EVERY DAY FOR 4 WEEKS, THEN 2 WEEKS OFF
     Route: 048
  6. PRILOSEC [Concomitant]
     Dosage: 20 MG, UNK
  7. DOXAZOSIN [Concomitant]
     Dosage: 4 MG, UNK
  8. SPIRIVA [Concomitant]

REACTIONS (1)
  - DEATH [None]
